FAERS Safety Report 23378406 (Version 2)
Quarter: 2024Q1

REPORT INFORMATION
  Report Type: Spontaneous
  Country: CN (occurrence: CN)
  Receive Date: 20240108
  Receipt Date: 20240223
  Transmission Date: 20240410
  Serious: Yes (Other)
  Sender: FDA-Public Use
  Company Number: CN-PFIZER INC-PV202300209635

PATIENT
  Age: 3 Year
  Sex: Female
  Weight: 18 kg

DRUGS (1)
  1. ZITHROMAX [Suspect]
     Active Substance: AZITHROMYCIN DIHYDRATE
     Indication: Therapeutic procedure
     Dosage: 0.1 G, 1X/DAY
     Route: 048
     Dates: start: 20231211, end: 20231215

REACTIONS (2)
  - Rash pruritic [Recovering/Resolving]
  - Rash erythematous [Recovering/Resolving]

NARRATIVE: CASE EVENT DATE: 20231213
